FAERS Safety Report 8960216 (Version 1)
Quarter: 2012Q4

REPORT INFORMATION
  Report Type: 
  Country: US (occurrence: US)
  Receive Date: 20121211
  Receipt Date: 20121211
  Transmission Date: 20130627
  Serious: Yes (Disabling, Other)
  Sender: FDA-Public Use
  Company Number: US-PFIZER INC-2012312111

PATIENT
  Age: 61 Year

DRUGS (3)
  1. LIPITOR [Suspect]
     Dosage: 20 mg, 1x/day
     Route: 048
  2. GLUCOTROL [Suspect]
     Dosage: 5 mg, 1x/day
     Route: 048
  3. NORVASC [Suspect]
     Dosage: 10 mg, 1x/day
     Route: 048

REACTIONS (1)
  - Cerebrovascular accident [Unknown]
